FAERS Safety Report 9340757 (Version 1)
Quarter: 2013Q2

REPORT INFORMATION
  Report Type: Spontaneous
  Country: GB (occurrence: GB)
  Receive Date: 20130610
  Receipt Date: 20130610
  Transmission Date: 20140414
  Serious: Yes (Other)
  Sender: FDA-Public Use
  Company Number: GB-PFIZER INC-2013170693

PATIENT
  Age: 9 Year
  Sex: Male

DRUGS (1)
  1. SOMATROPIN [Suspect]
     Dosage: UNK
     Dates: start: 201212, end: 201303

REACTIONS (2)
  - Scoliosis [Unknown]
  - Snoring [Recovered/Resolved]
